FAERS Safety Report 7336175-4 (Version None)
Quarter: 2011Q1

REPORT INFORMATION
  Report Type: 
  Country: None (occurrence: None)
  Receive Date: 20110307
  Receipt Date: 20110223
  Transmission Date: 20110831
  Serious: Yes (Hospitalization)
  Sender: FDA-Public Use
  Company Number: JP-AMGEN-JPNCT2011012546

PATIENT
  Age: 40 Year
  Sex: Male
  Weight: 57 kg

DRUGS (35)
  1. FLUOROURACIL [Suspect]
     Route: 041
     Dates: start: 20101018
  2. CALCIUM LEVOFOLINATE [Suspect]
     Indication: COLORECTAL CANCER
     Route: 041
     Dates: start: 20101018
  3. BUSCOPAN [Concomitant]
     Route: 042
  4. SOLDEM 3A [Concomitant]
     Route: 042
  5. SOLDEM 1 [Concomitant]
     Route: 042
  6. MAXIPIME [Concomitant]
     Route: 042
  7. ATROPINE [Concomitant]
     Route: 042
  8. RIBOFLAVIN TAB [Concomitant]
     Route: 048
  9. IRINOTECAN HYDROCHLORIDE [Suspect]
     Indication: COLORECTAL CANCER
     Route: 041
     Dates: start: 20101018
  10. FLUOROURACIL [Suspect]
     Indication: COLORECTAL CANCER
     Route: 040
     Dates: start: 20101018
  11. PRIMPERAN TAB [Concomitant]
     Route: 042
  12. CEFMETAZOLE SODIUM [Concomitant]
     Route: 042
  13. SANDOSTATIN [Concomitant]
     Route: 042
  14. VENOGLOBULIN [Concomitant]
     Route: 042
  15. TPN ELECTROLYTES IN PLASTIC CONTAINER [Concomitant]
     Route: 042
  16. FULCALIQ 2 [Concomitant]
     Route: 042
  17. CALONAL [Concomitant]
     Route: 048
  18. DEXART [Concomitant]
     Route: 042
  19. ENSURE [Concomitant]
     Route: 048
  20. GASTER [Concomitant]
     Route: 042
  21. PANITUMUMAB [Suspect]
     Dosage: 6 MG/KG, Q2WK
     Dates: start: 20110113, end: 20110113
  22. PHYSIOSOL 3 [Concomitant]
     Route: 042
  23. PANITUMUMAB [Suspect]
     Dosage: 6 MG/KG, Q2WK
     Route: 041
     Dates: start: 20101018, end: 20101220
  24. PANITUMUMAB [Suspect]
     Dosage: 6 MG/KG, Q2WK
     Dates: start: 20110215
  25. LOXOPROFEN [Concomitant]
     Route: 048
  26. MAGLAX [Concomitant]
     Route: 048
  27. VITAMEDIN [Concomitant]
     Route: 042
  28. MINOMYCIN [Concomitant]
     Route: 048
  29. ALOXI [Concomitant]
     Route: 042
  30. LACTEC [Concomitant]
     Route: 042
  31. PENTAZOCINE LACTATE [Concomitant]
     Route: 042
  32. FLURBIPROFEN [Concomitant]
     Route: 042
  33. OPYSTAN [Concomitant]
     Route: 042
  34. ROPIVACAINE HYDROCHLORIDE [Concomitant]
     Route: 042
  35. FULCALIQ 1 [Concomitant]
     Route: 042

REACTIONS (4)
  - DRY SKIN [None]
  - BONE MARROW FAILURE [None]
  - ILEUS [None]
  - STOMATITIS [None]
